FAERS Safety Report 21087294 (Version 1)
Quarter: 2022Q3

REPORT INFORMATION
  Report Type: Spontaneous
  Country: US (occurrence: None)
  Receive Date: 20220714
  Receipt Date: 20220714
  Transmission Date: 20221026
  Serious: Yes (Disabling)
  Sender: FDA-Public Use
  Company Number: None

PATIENT
  Age: 31 Year
  Sex: Male
  Weight: 189 kg

DRUGS (2)
  1. PAXLOVID [Suspect]
     Active Substance: NIRMATRELVIR\RITONAVIR
     Indication: COVID-19
     Dosage: FREQUENCY : TWICE A DAY;?
     Route: 048
  2. DEVICE [Concomitant]
     Active Substance: DEVICE

REACTIONS (4)
  - Rebound effect [None]
  - COVID-19 [None]
  - SARS-CoV-2 test positive [None]
  - Disease recurrence [None]

NARRATIVE: CASE EVENT DATE: 20220708
